FAERS Safety Report 5600972-3 (Version None)
Quarter: 2008Q1

REPORT INFORMATION
  Report Type: 
  Country: None (occurrence: None)
  Receive Date: 20080124
  Receipt Date: 20080115
  Transmission Date: 20080703
  Serious: Yes (Hospitalization)
  Sender: FDA-Public Use
  Company Number: PHHY2008JP00714

PATIENT
  Age: 59 Year
  Sex: Male
  Weight: 49 kg

DRUGS (17)
  1. AMLODIPINE BESYLATE [Concomitant]
     Indication: HYPERTENSION
     Dosage: 10 MG, UNK
     Route: 048
     Dates: start: 20030424, end: 20041115
  2. SIMVASTATIN [Concomitant]
     Indication: HYPERCHOLESTEROLAEMIA
     Dosage: 5 MG, UNK
     Route: 048
     Dates: start: 20030424, end: 20030602
  3. ROHYPNOL [Concomitant]
     Indication: INSOMNIA
     Dosage: 2 MG, UNK
     Route: 048
  4. DIOVAN [Suspect]
     Indication: HYPERTENSION
     Dosage: 80 MG, QD
     Route: 048
     Dates: start: 20030424, end: 20040906
  5. DIOVAN [Suspect]
     Dosage: 160 MG/DAILY
     Route: 048
     Dates: start: 20041022
  6. ALOSITOL [Concomitant]
     Indication: GOUT
     Route: 048
     Dates: start: 20030424
  7. PRERAN [Concomitant]
     Indication: HYPERTENSION
     Route: 048
     Dates: start: 20030424, end: 20050321
  8. ALFAROL [Concomitant]
     Indication: RENAL OSTEODYSTROPHY
     Dates: start: 20030424, end: 20031222
  9. ALFAROL [Concomitant]
     Dates: start: 20030424, end: 20031222
  10. CALTAN [Concomitant]
     Indication: HYPERPARATHYROIDISM SECONDARY
     Dosage: 4.5G/DAY
     Route: 048
     Dates: start: 20030424
  11. CLONAZEPAM [Concomitant]
     Indication: CONVULSION
     Dosage: 1G/DAY
     Route: 048
     Dates: start: 20030604
  12. GASTER D [Concomitant]
     Indication: GASTRIC ULCER
     Dosage: 10MG/DAY
     Route: 048
     Dates: start: 20030604
  13. ARTIST [Concomitant]
     Indication: HYPERTENSION
     Dosage: 10MG/DAY
     Route: 048
     Dates: start: 20031222
  14. CLARITIN [Concomitant]
     Indication: RHINITIS ALLERGIC
     Dosage: 10MG/DAY
     Route: 048
     Dates: start: 20031117, end: 20050530
  15. RENAGEL [Concomitant]
     Indication: HYPERPHOSPHATAEMIA
     Dosage: 3G/DAY
     Route: 048
  16. HYPOCA [Concomitant]
     Indication: HYPERTENSION
     Dosage: 30MG/DAY
     Route: 048
  17. FOIPAN [Concomitant]
     Indication: REFLUX OESOPHAGITIS
     Dosage: 300MG/DAY
     Dates: start: 20050321

REACTIONS (3)
  - DIARRHOEA [None]
  - LARGE INTESTINE CARCINOMA [None]
  - SURGERY [None]
